FAERS Safety Report 9499409 (Version 1)
Quarter: 2013Q3

REPORT INFORMATION
  Report Type: Spontaneous
  Country: US (occurrence: None)
  Receive Date: 20130903
  Receipt Date: 20130903
  Transmission Date: 20140515
  Serious: Yes (Hospitalization)
  Sender: FDA-Public Use
  Company Number: None

PATIENT
  Age: 59 Year
  Sex: Female
  Weight: 63.2 kg

DRUGS (1)
  1. EVEROLIMUS [Suspect]
     Indication: IMMUNOSUPPRESSION
     Route: 048
     Dates: start: 20130614, end: 20130716

REACTIONS (4)
  - Renal tubular necrosis [None]
  - Focal segmental glomerulosclerosis [None]
  - Disease recurrence [None]
  - Oedema [None]
